FAERS Safety Report 9008224 (Version 1)
Quarter: 2013Q1

REPORT INFORMATION
  Report Type: Spontaneous
  Country: US (occurrence: US)
  Receive Date: 20130111
  Receipt Date: 20130111
  Transmission Date: 20140127
  Serious: Yes (Hospitalization)
  Sender: FDA-Public Use
  Company Number: PHEH2013US000992

PATIENT
  Sex: Female

DRUGS (9)
  1. ZOMETA [Suspect]
     Indication: PLASMA CELL MYELOMA
     Route: 042
  2. VELCADE [Concomitant]
  3. REVLIMID [Concomitant]
  4. POTASSIUM [Concomitant]
  5. LASIX [Concomitant]
  6. HYZAAR [Concomitant]
  7. DEXAMETHASONE [Concomitant]
  8. ASA [Concomitant]
  9. COUMADINE [Concomitant]

REACTIONS (1)
  - Pneumonia [Unknown]
